FAERS Safety Report 5262622-8 (Version None)
Quarter: 2007Q1

REPORT INFORMATION
  Report Type: 
  Country: None (occurrence: None)
  Receive Date: 20070309
  Receipt Date: 20070309
  Transmission Date: 20070707
  Serious: Yes (Other)
  Sender: FDA-Public Use
  Company Number: None

PATIENT
  Age: 43 Year
  Sex: Male
  Weight: 86 kg

DRUGS (3)
  1. ETOPOSIDE INJ; 100MG/5ML; BEDFORD LABORATORIES [Suspect]
     Indication: TESTIS CANCER
     Dosage: ETOPOSIDE 200MG D1-5 IV
     Route: 042
     Dates: start: 20070212, end: 20070308
  2. CISPLATIN INJ; 100MG/100ML; BEDFORD LABORATORIES [Suspect]
     Indication: TESTIS CANCER
     Dosage: CISPLATIN 40MG D1-5 IV
     Route: 042
     Dates: start: 20070212, end: 20070308
  3. CISPLATIN INJ; 100MG/100ML; BEDFORD LABORATORIES [Suspect]

REACTIONS (1)
  - NEUTROPENIA [None]
